FAERS Safety Report 7542015-0 (Version None)
Quarter: 2011Q2

REPORT INFORMATION
  Report Type: 
  Country: None (occurrence: None)
  Receive Date: 20110613
  Receipt Date: 20110602
  Transmission Date: 20111010
  Serious: Yes (Hospitalization)
  Sender: FDA-Public Use
  Company Number: JP-ASTRAZENECA-2011SE23630

PATIENT
  Age: 65 Year
  Sex: Female
  Weight: 36 kg

DRUGS (12)
  1. MUCOSTA [Concomitant]
     Route: 048
     Dates: end: 20110222
  2. TOUGHMAC E [Concomitant]
     Dosage: UNKNOWN DOSE THREE TIMES A DAY
     Route: 048
     Dates: end: 20110222
  3. URSO 250 [Concomitant]
     Route: 048
     Dates: end: 20110202
  4. LANSOPRAZOLE [Concomitant]
     Route: 048
     Dates: end: 20110202
  5. IRESSA [Suspect]
     Indication: LUNG ADENOCARCINOMA
     Route: 048
     Dates: start: 20110204, end: 20110217
  6. PROCHLORPERAZINE [Concomitant]
     Indication: NAUSEA
     Route: 048
     Dates: start: 20110114, end: 20110222
  7. SIGMART [Concomitant]
     Route: 048
     Dates: end: 20110222
  8. OXYCONTIN [Concomitant]
     Indication: PAIN
     Route: 048
     Dates: start: 20110114, end: 20110222
  9. NORVASC [Concomitant]
     Route: 048
     Dates: end: 20110202
  10. COSPANON [Concomitant]
     Route: 048
     Dates: end: 20110222
  11. JUVELA N [Concomitant]
     Route: 048
     Dates: end: 20110222
  12. BIOFERMIN [Concomitant]
     Dosage: UNKNOWN DOSE THREE TIMES A DAY
     Route: 048
     Dates: end: 20110222

REACTIONS (1)
  - LUNG DISORDER [None]
